FAERS Safety Report 4665179-5 (Version None)
Quarter: 2005Q2

REPORT INFORMATION
  Report Type: 
  Country: None (occurrence: None)
  Receive Date: 20050517
  Receipt Date: 20050207
  Transmission Date: 20051028
  Serious: No
  Sender: FDA-Public Use
  Company Number: S05-USA-00648-01

PATIENT
  Age: 68 Year
  Sex: Female

DRUGS (7)
  1. NAMENDA [Suspect]
     Indication: HYPOAESTHESIA
     Dosage: 5 MG QD PO
     Route: 048
     Dates: start: 20050127, end: 20050202
  2. NAMENDA [Suspect]
     Indication: PARAESTHESIA
     Dosage: 5 MG QD PO
     Route: 048
     Dates: start: 20050127, end: 20050202
  3. NAMENDA [Suspect]
     Indication: HYPOAESTHESIA
     Dosage: 5 MG BID PO
     Route: 048
     Dates: start: 20050203
  4. NAMENDA [Suspect]
     Indication: PARAESTHESIA
     Dosage: 5 MG BID PO
     Route: 048
     Dates: start: 20050203
  5. MORPHINE SULFATE [Concomitant]
  6. CALAN [Concomitant]
  7. ZETIA [Concomitant]

REACTIONS (1)
  - HEADACHE [None]
